FAERS Safety Report 5814683-2 (Version None)
Quarter: 2008Q3

REPORT INFORMATION
  Report Type: 
  Country: None (occurrence: None)
  Receive Date: 20080718
  Receipt Date: 20080124
  Transmission Date: 20090109
  Serious: No
  Sender: FDA-Public Use
  Company Number: US-KINGPHARMUSA00001-K200800140

PATIENT

DRUGS (4)
  1. LEVOXYL [Suspect]
     Indication: THYROIDECTOMY
     Dosage: ^0.5 MG^, QD
     Route: 048
  2. INSULIN [Concomitant]
     Indication: DIABETES MELLITUS
     Dosage: UNK, BID
  3. ZESTRIL [Concomitant]
     Dosage: 20 MG, QD
  4. TYLENOL (CAPLET) [Concomitant]
     Dosage: 500 MG, PRN

REACTIONS (2)
  - DIZZINESS [None]
  - TINNITUS [None]
